FAERS Safety Report 24158604 (Version 2)
Quarter: 2024Q3

REPORT INFORMATION
  Report Type: Spontaneous
  Country: PL (occurrence: PL)
  Receive Date: 20240731
  Receipt Date: 20240925
  Transmission Date: 20241016
  Serious: Yes (Life-Threatening, Hospitalization)
  Sender: PFIZER
  Company Number: PL-AstraZeneca-2024A121272

PATIENT
  Age: 71 Year
  Sex: Female

DRUGS (34)
  1. DOXORUBICIN HYDROCHLORIDE [Suspect]
     Active Substance: DOXORUBICIN HYDROCHLORIDE
     Indication: Diffuse large B-cell lymphoma
     Dosage: 50 MG/M2, EVERY 3 WEEKS
     Route: 042
     Dates: start: 20240109, end: 20240109
  2. DOXORUBICIN HYDROCHLORIDE [Suspect]
     Active Substance: DOXORUBICIN HYDROCHLORIDE
     Dosage: 50 MG/M2, EVERY 3 WEEKS
     Route: 042
     Dates: start: 20240130, end: 20240130
  3. RITUXIMAB [Suspect]
     Active Substance: RITUXIMAB
     Indication: Diffuse large B-cell lymphoma
     Dosage: 375 MG/M2, EVERY 3 WEEKS
     Route: 042
     Dates: start: 20240109, end: 20240109
  4. RITUXIMAB [Suspect]
     Active Substance: RITUXIMAB
     Dosage: 375 MG/M2, EVERY 3 WEEKS
     Route: 042
     Dates: start: 20240130, end: 20240130
  5. PLACEBO [Suspect]
     Active Substance: PLACEBO
     Indication: Diffuse large B-cell lymphoma
     Dosage: UNK, 2X/DAY
     Route: 048
     Dates: start: 20240130, end: 20240219
  6. GRANULOCYTE COLONY-STIMULATING FACTOR NOS [Suspect]
     Active Substance: GRANULOCYTE COLONY-STIMULATING FACTOR NOS
     Indication: Diffuse large B-cell lymphoma
     Dosage: 6 MG, EVERY 3 WEEKS
     Dates: start: 20240111, end: 20240202
  7. VINCRISTINE [Suspect]
     Active Substance: VINCRISTINE
     Indication: Diffuse large B-cell lymphoma
     Dosage: 1.4 MG/M2, EVERY 3 WEEKS
     Route: 042
     Dates: start: 20240130, end: 20240130
  8. VINCRISTINE [Suspect]
     Active Substance: VINCRISTINE
     Dosage: 1.4 MG/M2, EVERY 3 WEEKS
     Route: 042
     Dates: start: 20240109, end: 20240109
  9. ACALABRUTINIB [Suspect]
     Active Substance: ACALABRUTINIB
     Indication: Diffuse large B-cell lymphoma
     Dosage: 100 MG, EVERY 12 HOURS
     Route: 048
     Dates: start: 20240130, end: 20240219
  10. CYCLOPHOSPHAMIDE [Suspect]
     Active Substance: CYCLOPHOSPHAMIDE
     Indication: Diffuse large B-cell lymphoma
     Dosage: 750 MG/M2, EVERY 3 WEEKS
     Route: 042
     Dates: start: 20240109, end: 20240109
  11. CYCLOPHOSPHAMIDE [Suspect]
     Active Substance: CYCLOPHOSPHAMIDE
     Dosage: 750 MG/M2, EVERY 3 WEEKS
     Route: 042
     Dates: start: 20240130, end: 20240130
  12. PREDNISONE [Suspect]
     Active Substance: PREDNISONE
     Indication: Diffuse large B-cell lymphoma
     Dosage: 100 MG, 1X/DAY
     Route: 048
     Dates: start: 20240109, end: 20240113
  13. PREDNISONE [Suspect]
     Active Substance: PREDNISONE
     Dosage: 100 MG, 1X/DAY
     Route: 048
     Dates: start: 20240130, end: 20240203
  14. NYSTATIN [Concomitant]
     Active Substance: NYSTATIN
     Indication: Prophylaxis
     Dosage: 1 DF, EVERY 8 HOURS
     Route: 048
     Dates: start: 20240224, end: 20240312
  15. ACICLOVIRUM [Concomitant]
     Indication: Infection prophylaxis
     Dosage: 800 MG, ALTERNATE DAY
     Route: 048
     Dates: start: 20240109
  16. FUROSEMIDIUM [Concomitant]
     Indication: Peripheral swelling
     Dosage: UNK
     Dates: start: 20240312, end: 20240423
  17. FUROSEMIDIUM [Concomitant]
     Indication: Cirrhosis alcoholic
     Dosage: 40 MG, 1X/DAY
     Route: 048
     Dates: start: 20240206, end: 20240223
  18. FUROSEMIDIUM [Concomitant]
     Dosage: 3 AMPOULE DAILY
     Route: 042
     Dates: start: 20240224, end: 20240306
  19. ENOXAPARIN SODIUM [Concomitant]
     Active Substance: ENOXAPARIN SODIUM
     Indication: Thrombosis prophylaxis
     Dosage: 40 MG, 1X/DAY
     Route: 058
     Dates: start: 202309, end: 20240223
  20. ENOXAPARIN SODIUM [Concomitant]
     Active Substance: ENOXAPARIN SODIUM
     Dosage: UNK
     Route: 058
     Dates: start: 20240312, end: 20240423
  21. ENOXAPARIN SODIUM [Concomitant]
     Active Substance: ENOXAPARIN SODIUM
     Dosage: 60 MG, EVERY 12 HOURS
     Route: 058
     Dates: start: 20240224, end: 20240306
  22. ESSENTIAL FORTE [Concomitant]
     Indication: Hyperbilirubinaemia
     Dosage: 1 DF, EVERY 8 HOURS
     Route: 048
     Dates: start: 20240220, end: 20240223
  23. XARELTO [Concomitant]
     Active Substance: RIVAROXABAN
     Indication: Pulmonary embolism
     Dosage: 20 MG, 1X/DAY
     Route: 048
  24. DEXAMETHASONE [Concomitant]
     Active Substance: DEXAMETHASONE
     Indication: COVID-19
     Dosage: UNK
     Dates: start: 20240312, end: 20240423
  25. DEXAMETHASONE [Concomitant]
     Active Substance: DEXAMETHASONE
     Dosage: 16 MG, 1X/DAY
     Route: 042
     Dates: start: 20240109, end: 20240109
  26. DEXAMETHASONE [Concomitant]
     Active Substance: DEXAMETHASONE
     Dosage: 2 MG, 1X/DAY
     Route: 048
     Dates: start: 20240224, end: 20240306
  27. DEXAMETHASONE [Concomitant]
     Active Substance: DEXAMETHASONE
     Dosage: 1 MG, 1X/DAY
     Route: 048
     Dates: start: 20240307, end: 20240308
  28. DEXAMETHASONE [Concomitant]
     Active Substance: DEXAMETHASONE
     Dosage: 16 MG, 1X/DAY
     Route: 042
     Dates: start: 20240130, end: 20240130
  29. SPIRONOLACTONE [Concomitant]
     Active Substance: SPIRONOLACTONE
     Indication: Cirrhosis alcoholic
     Dosage: 100 MG, EVERY 12 HOURS
     Route: 048
     Dates: start: 20240224, end: 20240312
  30. BUDESONIDE [Concomitant]
     Active Substance: BUDESONIDE
     Indication: COVID-19
     Dosage: UNK, 2X/DAY
     Route: 055
     Dates: start: 20240224, end: 20240306
  31. ENTECAVIRUM [Concomitant]
     Indication: Hepatitis B
     Dosage: 0.5 MG, 1X/DAY
     Route: 048
     Dates: start: 20240104
  32. ORNITHINE ASPARTATE [Concomitant]
     Active Substance: ORNITHINE ASPARTATE
     Indication: Cirrhosis alcoholic
     Dosage: FREQ:8 H;
     Route: 048
     Dates: start: 20240224
  33. CEFTRIAXONE SODIUM [Concomitant]
     Active Substance: CEFTRIAXONE SODIUM
     Indication: COVID-19
     Dosage: 2 G, 1X/DAY
     Route: 042
     Dates: start: 20240224, end: 202403
  34. URSODIOL [Concomitant]
     Active Substance: URSODIOL
     Indication: Thrombosis prophylaxis
     Dosage: 250 MG, EVERY 12 HOURS
     Route: 048
     Dates: start: 202309

REACTIONS (2)
  - Haematoma [Recovered/Resolved]
  - Peritonitis [Recovered/Resolved]

NARRATIVE: CASE EVENT DATE: 20240306
